FAERS Safety Report 13923241 (Version 1)
Quarter: 2017Q3

REPORT INFORMATION
  Report Type: Spontaneous
  Country: DE (occurrence: DE)
  Receive Date: 20170831
  Receipt Date: 20170831
  Transmission Date: 20171127
  Serious: Yes (Other)
  Sender: FDA-Public Use
  Company Number: DE-UCBSA-2017033611

PATIENT
  Age: 61 Year
  Sex: Female

DRUGS (3)
  1. VIMPAT [Suspect]
     Active Substance: LACOSAMIDE
     Indication: PRODUCT USED FOR UNKNOWN INDICATION
     Dosage: 15 ML, 2X/DAY (BID)
  2. CORTISON [Concomitant]
     Active Substance: CORTISONE ACETATE
     Indication: INFLAMMATION
     Dosage: UNK
  3. VIMPAT [Suspect]
     Active Substance: LACOSAMIDE
     Dosage: 10 ML MORNING 15 ML EVENING

REACTIONS (4)
  - Headache [Not Recovered/Not Resolved]
  - Meningitis [Unknown]
  - Genital tract inflammation [Recovered/Resolved]
  - Inflammation [Recovering/Resolving]

NARRATIVE: CASE EVENT DATE: 201707
